FAERS Safety Report 14220995 (Version 1)
Quarter: 2017Q4

REPORT INFORMATION
  Report Type: Spontaneous
  Country: US (occurrence: US)
  Receive Date: 20171124
  Receipt Date: 20171124
  Transmission Date: 20180321
  Serious: No
  Sender: FDA-Public Use
  Company Number: US-CONCORDIA LABORATORIES INC.-2017-CLI-000013

PATIENT
  Age: 45 Year

DRUGS (1)
  1. PHOTOFRIN [Suspect]
     Active Substance: PORFIMER SODIUM
     Indication: BRAIN NEOPLASM
     Dosage: INCREASING DOSES (0.75, 1.2, 1.6, 2.0 MG KG)
     Route: 042

REACTIONS (2)
  - Facial paralysis [Recovering/Resolving]
  - Off label use [Unknown]
